FAERS Safety Report 6874940-8 (Version None)
Quarter: 2010Q2

REPORT INFORMATION
  Report Type: 
  Country: None (occurrence: None)
  Receive Date: 20100616
  Receipt Date: 20100428
  Transmission Date: 20101027
  Serious: Yes (Other)
  Sender: FDA-Public Use
  Company Number: WAES 1004USA04427

PATIENT
  Age: 61 Year
  Sex: Female

DRUGS (3)
  1. HYZAAR [Suspect]
     Dosage: 100-25 MG/PO
     Route: 048
  2. LIPITOR [Suspect]
     Dosage: 20 MG/PO
     Route: 048
  3. PREMARIN [Suspect]
     Dosage: 0.3 MG

REACTIONS (2)
  - MALAISE [None]
  - MUSCLE SPASMS [None]
